FAERS Safety Report 8523050-2 (Version None)
Quarter: 2012Q3

REPORT INFORMATION
  Report Type: 
  Country: None (occurrence: None)
  Receive Date: 20120720
  Receipt Date: 20110517
  Transmission Date: 20120928
  Serious: Yes (Hospitalization, Other)
  Sender: FDA-Public Use
  Company Number: US-BAYER-201013377NA

PATIENT
  Age: 18 Year
  Sex: Female
  Weight: 43.084 kg

DRUGS (9)
  1. YAZ [Suspect]
     Indication: PREMENSTRUAL SYNDROME
     Route: 048
     Dates: start: 20071201, end: 20080401
  2. PREVACID [Concomitant]
  3. YAZ [Suspect]
     Indication: MENSTRUATION IRREGULAR
  4. MEDROXYPROGESTERONE [Concomitant]
     Dosage: 150 MG, UNK
  5. NUVARING [Concomitant]
     Indication: VAGINAL HAEMORRHAGE
     Dosage: UNK
     Dates: start: 20081105
  6. NEXIUM [Concomitant]
     Indication: GASTRITIS
  7. PROTONIX [Concomitant]
     Indication: GASTRITIS
  8. PRILOSEC [Concomitant]
  9. CONTRACEPTIVES NOS [Concomitant]
     Dosage: UNK
     Dates: start: 20080701, end: 20080101

REACTIONS (8)
  - WEIGHT DECREASED [None]
  - NAUSEA [None]
  - CHOLECYSTITIS CHRONIC [None]
  - CHOLELITHIASIS [None]
  - BILIARY DYSKINESIA [None]
  - VAGINAL HAEMORRHAGE [None]
  - DECREASED APPETITE [None]
  - ABDOMINAL PAIN [None]
